FAERS Safety Report 5166437-0 (Version None)
Quarter: 2006Q4

REPORT INFORMATION
  Report Type: 
  Country: None (occurrence: None)
  Receive Date: 20061207
  Receipt Date: 20061128
  Transmission Date: 20070319
  Serious: Yes (Hospitalization)
  Sender: FDA-Public Use
  Company Number: NL-JNJFOC-20060901868

PATIENT
  Sex: Male
  Weight: 104 kg

DRUGS (9)
  1. INFLIXIMAB, RECOMBINANT [Suspect]
     Route: 042
  2. INFLIXIMAB, RECOMBINANT [Suspect]
     Indication: RHEUMATOID ARTHRITIS
     Route: 042
  3. IBUPROFEN [Suspect]
     Indication: PAIN
     Route: 065
  4. ATENOLOL [Suspect]
     Indication: HYPERTENSION
     Route: 065
  5. METHOTREXATE [Concomitant]
     Route: 065
  6. PRAVASTATIN [Concomitant]
     Indication: HYPERCHOLESTEROLAEMIA
     Route: 065
  7. CALCIORAL [Concomitant]
     Indication: NUTRITIONAL SUPPORT
     Route: 065
  8. OMEPRAZOLE [Concomitant]
     Indication: DYSPEPSIA
     Route: 065
  9. FOLIC ACID [Concomitant]
     Route: 065

REACTIONS (8)
  - BLOOD PRESSURE INCREASED [None]
  - HYPERHIDROSIS [None]
  - HYPOTENSION [None]
  - INFECTION [None]
  - INFUSION RELATED REACTION [None]
  - LYMPHADENOPATHY [None]
  - MALAISE [None]
  - PULMONARY EMBOLISM [None]
